FAERS Safety Report 23200997 (Version 3)
Quarter: 2024Q1

REPORT INFORMATION
  Report Type: Other
  Country: US (occurrence: US)
  Receive Date: 20231118
  Receipt Date: 20240210
  Transmission Date: 20240410
  Serious: No
  Sender: FDA-Public Use
  Company Number: US-TRAVERE-2023TVT00483

PATIENT
  Age: 52 Year
  Sex: Male

DRUGS (2)
  1. FILSPARI [Suspect]
     Active Substance: SPARSENTAN
     Indication: IgA nephropathy
     Route: 048
     Dates: start: 20230903
  2. FILSPARI [Suspect]
     Active Substance: SPARSENTAN
     Route: 048

REACTIONS (4)
  - Blood pressure increased [Recovering/Resolving]
  - Fatigue [Unknown]
  - Contraindicated product prescribed [Unknown]
  - Back pain [Unknown]

NARRATIVE: CASE EVENT DATE: 20230903
